FAERS Safety Report 4315338-6 (Version None)
Quarter: 2004Q1

REPORT INFORMATION
  Report Type: 
  Country: None (occurrence: None)
  Receive Date: 20040309
  Receipt Date: 20040224
  Transmission Date: 20041129
  Serious: Yes (Hospitalization)
  Sender: FDA-Public Use
  Company Number: FR_040203651

PATIENT
  Age: 61 Year
  Sex: Male
  Weight: 81 kg

DRUGS (2)
  1. ALIMTA [Suspect]
     Indication: PLEURAL MESOTHELIOMA MALIGNANT
     Dosage: 500 MG/M2/1 OTHER
     Dates: start: 20040122
  2. CISPLATIN [Concomitant]

REACTIONS (2)
  - RENAL FAILURE ACUTE [None]
  - URINARY RETENTION [None]
